FAERS Safety Report 9296582 (Version 5)
Quarter: 2014Q2

REPORT INFORMATION
  Report Type: Spontaneous
  Country: US (occurrence: US)
  Receive Date: 20130517
  Receipt Date: 20140414
  Transmission Date: 20141212
  Serious: No
  Sender: FDA-Public Use
  Company Number: US-009507513-1305USA010157

PATIENT
  Sex: Male
  Weight: 107.3 kg

DRUGS (3)
  1. PROPECIA [Suspect]
     Indication: ANDROGENETIC ALOPECIA
     Dosage: 1 MG, QD
     Route: 048
     Dates: start: 20060224
  2. PROSCAR [Suspect]
     Dosage: 5 MG, UNK
     Route: 048
  3. FINASTERIDE [Suspect]
     Dosage: 5 MG, UNK
     Route: 048
     Dates: start: 20120229

REACTIONS (22)
  - Affective disorder [Unknown]
  - Blood testosterone decreased [Not Recovered/Not Resolved]
  - Asthenia [Unknown]
  - General physical health deterioration [Unknown]
  - Wrong technique in drug usage process [Unknown]
  - Essential hypertension [Unknown]
  - Neoplasm prostate [Unknown]
  - Micturition urgency [Unknown]
  - Pollakiuria [Recovering/Resolving]
  - Anxiety [Unknown]
  - Insomnia [Unknown]
  - Back pain [Unknown]
  - Sexual dysfunction [Not Recovered/Not Resolved]
  - Depression [Unknown]
  - Erectile dysfunction [Recovering/Resolving]
  - Libido decreased [Unknown]
  - Gynaecomastia [Unknown]
  - Epistaxis [Recovered/Resolved]
  - Androgens abnormal [Unknown]
  - Nocturia [Recovering/Resolving]
  - Inflammation [Recovering/Resolving]
  - Alcohol use [Unknown]
